FAERS Safety Report 8186302-4 (Version None)
Quarter: 2012Q1

REPORT INFORMATION
  Report Type: 
  Country: None (occurrence: None)
  Receive Date: 20120301
  Receipt Date: 20120213
  Transmission Date: 20120608
  Serious: Yes (Hospitalization)
  Sender: FDA-Public Use
  Company Number: 20120086

PATIENT
  Age: 84 Year
  Sex: Female

DRUGS (1)
  1. VENOFER [Suspect]
     Dosage: INTRAVENOUS
     Route: 042

REACTIONS (4)
  - INFUSION SITE THROMBOSIS [None]
  - INFUSION SITE NECROSIS [None]
  - INFUSION SITE EXTRAVASATION [None]
  - INFUSION SITE INFECTION [None]
